FAERS Safety Report 15958708 (Version 1)
Quarter: 2019Q1

REPORT INFORMATION
  Report Type: Spontaneous
  Country: US (occurrence: US)
  Receive Date: 20190213
  Receipt Date: 20190213
  Transmission Date: 20190417
  Serious: No
  Sender: FDA-Public Use
  Company Number: US-PURDUE-USA-2018-0144763

PATIENT
  Sex: Male

DRUGS (2)
  1. BUTRANS [Suspect]
     Active Substance: BUPRENORPHINE
     Dosage: 20 MCG, WEEKLY
     Route: 062
     Dates: start: 2014
  2. BUTRANS [Suspect]
     Active Substance: BUPRENORPHINE
     Indication: BACK PAIN
     Dosage: 20 MCG, WEEKLY
     Route: 062

REACTIONS (3)
  - Drug withdrawal syndrome [Unknown]
  - Product adhesion issue [Unknown]
  - Incorrect dose administered by product [Unknown]
